FAERS Safety Report 4382138-0 (Version None)
Quarter: 2004Q2

REPORT INFORMATION
  Report Type: 
  Country: None (occurrence: None)
  Receive Date: 20040617
  Receipt Date: 20031114
  Transmission Date: 20050107
  Serious: Yes (Death)
  Sender: FDA-Public Use
  Company Number: 351948

PATIENT
  Age: 29 Year

DRUGS (1)
  1. XENICAL [Suspect]

REACTIONS (1)
  - DEATH [None]
